FAERS Safety Report 8304563-5 (Version None)
Quarter: 2012Q2

REPORT INFORMATION
  Report Type: 
  Country: None (occurrence: None)
  Receive Date: 20120423
  Receipt Date: 20120418
  Transmission Date: 20120825
  Serious: Yes (Hospitalization)
  Sender: FDA-Public Use
  Company Number: CN-GLAXOSMITHKLINE-B0787451A

PATIENT
  Sex: Male

DRUGS (3)
  1. LAMIVUDINE [Suspect]
     Indication: HEPATITIS B
     Dosage: .1G PER DAY
     Route: 048
     Dates: start: 20000101, end: 20120302
  2. LAMIVUDINE [Suspect]
     Dosage: .1G PER DAY
     Route: 048
     Dates: start: 20120408
  3. HEPSERA [Suspect]
     Indication: HEPATITIS B
     Dosage: 10MG PER DAY
     Route: 048
     Dates: start: 20120408

REACTIONS (4)
  - ASPARTATE AMINOTRANSFERASE INCREASED [None]
  - PRODUCT QUALITY ISSUE [None]
  - ALANINE AMINOTRANSFERASE INCREASED [None]
  - PRODUCT COUNTERFEIT [None]
